FAERS Safety Report 6085833-0 (Version None)
Quarter: 2009Q1

REPORT INFORMATION
  Report Type: 
  Country: None (occurrence: None)
  Receive Date: 20090220
  Receipt Date: 20090213
  Transmission Date: 20090719
  Serious: Yes (Hospitalization)
  Sender: FDA-Public Use
  Company Number: A0769567A

PATIENT
  Age: 50 Year
  Sex: Female
  Weight: 155.5 kg

DRUGS (4)
  1. AVANDAMET [Suspect]
     Route: 065
     Dates: start: 20040330, end: 20050201
  2. AVANDIA [Suspect]
     Dosage: 4MG TWICE PER DAY
     Route: 065
     Dates: start: 20050207, end: 20080701
  3. GLUCOPHAGE [Concomitant]
     Dates: start: 20031201
  4. METFORMIN [Concomitant]
     Dates: start: 20051018

REACTIONS (7)
  - ATRIAL FIBRILLATION [None]
  - CARDIAC HYPERTROPHY [None]
  - CARDIOVASCULAR DISORDER [None]
  - CHEST PAIN [None]
  - HYPERCHOLESTEROLAEMIA [None]
  - HYPERTENSION [None]
  - MYOCARDIAL INFARCTION [None]
